FAERS Safety Report 20617919 (Version 7)
Quarter: 2022Q2

REPORT INFORMATION
  Report Type: Spontaneous
  Country: PL (occurrence: PL)
  Receive Date: 20220321
  Receipt Date: 20220622
  Transmission Date: 20220721
  Serious: Yes (Death, Hospitalization, Other)
  Sender: FDA-Public Use
  Company Number: US-CELGENE-POL-20210803262

PATIENT
  Age: 66 Year
  Sex: Female

DRUGS (105)
  1. AZACITIDINE [Suspect]
     Active Substance: AZACITIDINE
     Indication: Acute myeloid leukaemia
     Dosage: 75 MILLIGRAM/SQ. METER (FREQUENCY TEXT: NOT PROVIDED)
     Route: 058
     Dates: start: 20210712
  2. AZACITIDINE [Suspect]
     Active Substance: AZACITIDINE
     Dosage: FREQUENCY TEXT: NOT PROVIDED (ROUTE: INJECTION)
     Dates: start: 20210712
  3. AZACITIDINE [Suspect]
     Active Substance: AZACITIDINE
     Dosage: UNK
     Route: 041
     Dates: start: 20210712, end: 20210712
  4. AZACITIDINE [Suspect]
     Active Substance: AZACITIDINE
     Dosage: UNK
     Route: 041
     Dates: start: 20210713, end: 20210713
  5. AZACITIDINE [Suspect]
     Active Substance: AZACITIDINE
     Dosage: UNK
     Route: 042
     Dates: start: 20210713, end: 20210713
  6. AZACITIDINE [Suspect]
     Active Substance: AZACITIDINE
     Dosage: UNK
     Route: 041
     Dates: start: 20210714, end: 20210725
  7. AZACITIDINE [Suspect]
     Active Substance: AZACITIDINE
     Dosage: UNK (FREQUENCY TEXT: NOT PROVIDED)
     Route: 042
     Dates: start: 20210714, end: 20210725
  8. AZACITIDINE [Suspect]
     Active Substance: AZACITIDINE
     Dosage: UNK
     Route: 041
     Dates: start: 20210725
  9. AZACITIDINE [Suspect]
     Active Substance: AZACITIDINE
     Dosage: UNK (FREQUENCY TEXT: NOT PROVIDED)
     Route: 042
     Dates: start: 20210725
  10. PEVONEDISTAT [Suspect]
     Active Substance: PEVONEDISTAT
     Indication: Acute myeloid leukaemia
     Dosage: UNK
     Dates: start: 20210712, end: 20210712
  11. PEVONEDISTAT [Suspect]
     Active Substance: PEVONEDISTAT
     Dosage: UNK (METER)
     Route: 048
     Dates: start: 20210713
  12. PEVONEDISTAT [Suspect]
     Active Substance: PEVONEDISTAT
     Dosage: UNK
     Dates: start: 20210713, end: 20210713
  13. PEVONEDISTAT [Suspect]
     Active Substance: PEVONEDISTAT
     Dosage: UNK
     Dates: start: 20210714, end: 20210725
  14. PEVONEDISTAT [Suspect]
     Active Substance: PEVONEDISTAT
     Dosage: UNK
     Dates: start: 20210725
  15. PEVONEDISTAT [Suspect]
     Active Substance: PEVONEDISTAT
     Dosage: UNK (1)
     Dates: start: 20210714
  16. PEVONEDISTAT [Suspect]
     Active Substance: PEVONEDISTAT
     Dosage: 200 MILLIGRAM
  17. PEVONEDISTAT [Suspect]
     Active Substance: PEVONEDISTAT
     Dosage: UNK
  18. PEVONEDISTAT [Suspect]
     Active Substance: PEVONEDISTAT
     Indication: Acute myeloid leukaemia
     Dosage: 75 MILLIGRAM/SQ. METER
     Route: 058
     Dates: start: 20210712, end: 20210712
  19. PEVONEDISTAT [Suspect]
     Active Substance: PEVONEDISTAT
     Dosage: INFORMATION WITHHELD.
     Route: 058
     Dates: start: 20210712, end: 20210712
  20. VENETOCLAX [Suspect]
     Active Substance: VENETOCLAX
     Indication: Acute myeloid leukaemia
     Dosage: UNK (BLINDED)
     Route: 048
     Dates: start: 20210712, end: 20210712
  21. VENETOCLAX [Suspect]
     Active Substance: VENETOCLAX
     Dosage: 100 MILLIGRAM; ORAL 200 MILLIGRAM; ORAL 400 MILLIGRAM; ORAL 100 MILLIGRAM; ORAL
     Route: 048
     Dates: start: 20210712, end: 20210712
  22. VENETOCLAX [Suspect]
     Active Substance: VENETOCLAX
     Dosage: FREQUENCY TEXT: NOT PROVIDED 200 MILLIGRAM
     Route: 048
     Dates: start: 20210713, end: 20210713
  23. VENETOCLAX [Suspect]
     Active Substance: VENETOCLAX
     Dosage: UNK
     Dates: start: 20210714, end: 20210714
  24. VENETOCLAX [Suspect]
     Active Substance: VENETOCLAX
     Dosage: FREQUENCY TEXT: NOT PROVIDED 400 MILLIGRAM
     Route: 048
     Dates: start: 20210714, end: 20210725
  25. VENETOCLAX [Suspect]
     Active Substance: VENETOCLAX
     Dosage: 100 MILLIGRAM
     Route: 048
     Dates: start: 20210725
  26. VENETOCLAX [Suspect]
     Active Substance: VENETOCLAX
     Dosage: FREQUENCY TEXT: NOT PROVIDED 100 MILLIGRAM
     Route: 048
     Dates: start: 20210726, end: 20210910
  27. VENETOCLAX [Suspect]
     Active Substance: VENETOCLAX
     Dosage: 400 MILLIGRAM
     Route: 048
     Dates: start: 20210911
  28. VENETOCLAX [Suspect]
     Active Substance: VENETOCLAX
     Dosage: FREQUENCY TEXT: NOT PROVIDED
     Dates: start: 20211116
  29. CEFEPIME HYDROCHLORIDE [Concomitant]
     Active Substance: CEFEPIME HYDROCHLORIDE
     Indication: Product used for unknown indication
     Dosage: UNK (FREQUENCY TEXT: NOT PROVIDED)
     Dates: start: 20210713, end: 20210714
  30. KCL [Concomitant]
     Active Substance: POTASSIUM CHLORIDE
     Indication: Product used for unknown indication
     Dosage: UNK (FREQUENCY TEXT: NOT PROVIDED)
     Dates: start: 20210719, end: 20210720
  31. KCL [Concomitant]
     Active Substance: POTASSIUM CHLORIDE
     Dosage: UNK
     Dates: start: 20210719, end: 20210721
  32. SODIUM BICARBONATE [Concomitant]
     Active Substance: SODIUM BICARBONATE
     Indication: Prophylaxis
     Dosage: UNK (FREQUENCY TEXT: NOT PROVIDED)
     Dates: start: 20210714, end: 20210721
  33. SODIUM BICARBONATE [Concomitant]
     Active Substance: SODIUM BICARBONATE
     Dosage: UNK
     Dates: start: 20211102, end: 20211110
  34. ACYCLOVIR [Concomitant]
     Active Substance: ACYCLOVIR
     Indication: Antiviral treatment
     Dosage: UNK
     Dates: start: 20210630, end: 20210702
  35. ACYCLOVIR [Concomitant]
     Active Substance: ACYCLOVIR
     Indication: Infection prophylaxis
     Dosage: FREQUENCY TEXT: NOT PROVIDED
     Dates: start: 20210630, end: 20211028
  36. ACYCLOVIR [Concomitant]
     Active Substance: ACYCLOVIR
     Dosage: FREQUENCY TEXT: NOT PROVIDED
     Dates: start: 20211116
  37. ONDANSETRON [Concomitant]
     Active Substance: ONDANSETRON
     Indication: Prophylaxis of nausea and vomiting
     Dosage: UNK (FREQUENCY TEXT: NOT PROVIDED)
     Dates: start: 20210712, end: 20210716
  38. ONDANSETRON [Concomitant]
     Active Substance: ONDANSETRON
     Dosage: UNK
     Dates: start: 20210712, end: 20210720
  39. ALLOPURINOL [Concomitant]
     Active Substance: ALLOPURINOL
     Indication: Product used for unknown indication
     Dosage: UNK (FREQUENCY TEXT: NOT PROVIDED)
     Dates: start: 20210712, end: 20210716
  40. MEROPENEM [Concomitant]
     Active Substance: MEROPENEM
     Indication: Product used for unknown indication
     Dosage: UNK (FREQUENCY TEXT: NOT PROVIDED)
     Dates: start: 20210714, end: 20210720
  41. NADROPARIN CALCIUM [Concomitant]
     Active Substance: NADROPARIN CALCIUM
     Indication: Prophylaxis
     Dosage: FREQUENCY TEXT: NOT PROVIDED
     Dates: start: 20210717, end: 20210721
  42. POTASSIUM CHLORIDE [Concomitant]
     Active Substance: POTASSIUM CHLORIDE
     Indication: Prophylaxis
     Dosage: UNK
     Dates: start: 20210715
  43. LINEZOLID [Concomitant]
     Active Substance: LINEZOLID
     Indication: Infection
     Dosage: UNK (FREQUENCY TEXT: NOT PROVIDED)
     Dates: start: 20210714, end: 20210721
  44. TRANEXAMIC ACID [Concomitant]
     Active Substance: TRANEXAMIC ACID
     Indication: Thrombocytopenia
     Dosage: UNK (FREQUENCY TEXT: NOT PROVIDED)
     Dates: start: 20210726
  45. TRANEXAMIC ACID [Concomitant]
     Active Substance: TRANEXAMIC ACID
     Dosage: FREQUENCY TEXT: NOT PROVIDED
     Dates: start: 20210728, end: 20210810
  46. CASPOFUNGIN ACETATE [Concomitant]
     Active Substance: CASPOFUNGIN ACETATE
     Indication: Antifungal prophylaxis
     Dosage: UNK
     Dates: start: 20210707, end: 20210720
  47. CASPOFUNGIN ACETATE [Concomitant]
     Active Substance: CASPOFUNGIN ACETATE
     Dosage: UNK
     Dates: start: 20210707, end: 20210721
  48. CASPOFUNGIN ACETATE [Concomitant]
     Active Substance: CASPOFUNGIN ACETATE
     Dosage: FREQUENCY TEXT: NOT PROVIDED
  49. ATORVASTATIN CALCIUM [Concomitant]
     Active Substance: ATORVASTATIN CALCIUM
     Indication: Hypercholesterolaemia
     Dosage: UNK (FREQUENCY TEXT: NOT PROVIDED)
  50. PANTOPRAZOLE [Concomitant]
     Active Substance: PANTOPRAZOLE
     Indication: Dyspepsia
     Dosage: UNK (FREQUENCY TEXT: NOT PROVIDED)
     Dates: start: 20210717, end: 20210721
  51. RINGERS SOLUTION [Concomitant]
     Active Substance: CALCIUM CHLORIDE\POTASSIUM CHLORIDE\SODIUM CHLORIDE
     Indication: Product used for unknown indication
     Dosage: UNK (FREQUENCY TEXT: NOT PROVIDED)
     Dates: start: 20210712, end: 20210720
  52. INSULIN HUMAN [Concomitant]
     Active Substance: INSULIN HUMAN
     Indication: Diabetes mellitus
     Dosage: FREQUENCY TEXT: NOT PROVIDED
     Dates: start: 20210721, end: 20210721
  53. INSULIN HUMAN [Concomitant]
     Active Substance: INSULIN HUMAN
     Dosage: UNK
     Dates: start: 20210802
  54. ZOLPIDEM [Concomitant]
     Active Substance: ZOLPIDEM TARTRATE
     Indication: Insomnia
     Dosage: FREQUENCY TEXT: NOT PROVIDED
     Dates: end: 20210802
  55. ZOLPIDEM [Concomitant]
     Active Substance: ZOLPIDEM TARTRATE
     Dosage: UNK
  56. ZOLPIDEM [Concomitant]
     Active Substance: ZOLPIDEM TARTRATE
     Dosage: FREQUENCY TEXT: NOT PROVIDED
     Dates: start: 20210802
  57. BETAHISTINE [Concomitant]
     Active Substance: BETAHISTINE
     Indication: Vertigo
     Dosage: FREQUENCY TEXT: NOT PROVIDED
  58. BETAHISTINE [Concomitant]
     Active Substance: BETAHISTINE
     Dosage: UNK
     Dates: start: 20210713, end: 20210714
  59. VORICONAZOLE [Concomitant]
     Active Substance: VORICONAZOLE
     Indication: Antifungal prophylaxis
     Dosage: UNK (FREQUENCY TEXT: NOT PROVIDED)
     Dates: start: 20210721, end: 20210910
  60. VORICONAZOLE [Concomitant]
     Active Substance: VORICONAZOLE
     Indication: Neutropenia
     Dosage: UNK (FREQUENCY TEXT: NOT PROVIDED)
     Dates: start: 20211006
  61. VORICONAZOLE [Concomitant]
     Active Substance: VORICONAZOLE
     Indication: Febrile neutropenia
     Dosage: UNK
  62. LEVOFLOXACIN [Concomitant]
     Active Substance: LEVOFLOXACIN
     Indication: Infection prophylaxis
     Dosage: FREQUENCY TEXT: NOT PROVIDED
     Dates: start: 20210713, end: 20210803
  63. LEVOFLOXACIN [Concomitant]
     Active Substance: LEVOFLOXACIN
     Dosage: UNK
     Dates: start: 20210722
  64. LEVOFLOXACIN [Concomitant]
     Active Substance: LEVOFLOXACIN
     Dosage: UNK
     Dates: start: 20211104, end: 20211115
  65. NADROPARIN CALCIUM [Concomitant]
     Active Substance: NADROPARIN CALCIUM
     Indication: Thrombosis prophylaxis
     Dosage: FREQUENCY TEXT: NOT PROVIDED
  66. NADROPARIN CALCIUM [Concomitant]
     Active Substance: NADROPARIN CALCIUM
     Dosage: UNK (FREQUENCY TEXT: NOT PROVIDED)
     Dates: start: 20210702, end: 20210721
  67. MEGESTROL ACETATE [Concomitant]
     Active Substance: MEGESTROL ACETATE
     Indication: Decreased appetite
     Dosage: UNK (FREQUENCY TEXT: NOT PROVIDED)
     Dates: start: 20210802, end: 20210802
  68. TRAZODONE HYDROCHLORIDE [Concomitant]
     Active Substance: TRAZODONE HYDROCHLORIDE
     Indication: Insomnia
     Dosage: FREQUENCY TEXT: NOT PROVIDED
     Dates: start: 20210802
  69. POTASSIUM CHLORIDE [Concomitant]
     Active Substance: POTASSIUM CHLORIDE
     Indication: Prophylaxis
     Dosage: FREQUENCY TEXT: NOT PROVIDED
     Dates: start: 20210910
  70. CEFUROXIME [Concomitant]
     Active Substance: CEFUROXIME
     Indication: Cough
     Dosage: FREQUENCY TEXT: NOT PROVIDED
     Dates: start: 20211116
  71. CEFUROXIME [Concomitant]
     Active Substance: CEFUROXIME
     Indication: Infection
     Dosage: UNK
  72. METAMIZOLE SODIUM [Concomitant]
     Active Substance: METAMIZOLE SODIUM
     Indication: Lumbar puncture
     Dosage: FREQUENCY TEXT: NOT PROVIDED
     Route: 048
     Dates: start: 20211104, end: 20211104
  73. ASCORBIC ACID [Concomitant]
     Active Substance: ASCORBIC ACID
     Indication: Cough
     Dosage: UNK
     Dates: start: 20211122
  74. AMOXICILLIN [Concomitant]
     Active Substance: AMOXICILLIN
     Indication: Inflammation
     Dosage: UNK (FREQUENCY TEXT: NOT PROVIDED)
     Dates: start: 20210825
  75. PANTOPRAZOLE SODIUM [Concomitant]
     Active Substance: PANTOPRAZOLE SODIUM
     Indication: Dyspepsia
     Dosage: UNK
     Dates: start: 20210910
  76. ACETAMINOPHEN [Concomitant]
     Active Substance: ACETAMINOPHEN
     Indication: Pain in extremity
     Dosage: UNK
     Route: 048
     Dates: start: 20211031, end: 20211102
  77. DEXTROSE [Concomitant]
     Active Substance: DEXTROSE
     Indication: Prophylaxis
     Dosage: UNK (FREQUENCY TEXT: NOT PROVIDED)
     Dates: start: 20211102, end: 20211102
  78. POTASSIUM BICARBONATE\POTASSIUM CITRATE [Concomitant]
     Active Substance: POTASSIUM BICARBONATE\POTASSIUM CITRATE
     Indication: Prophylaxis
     Dosage: FREQUENCY TEXT: NOT PROVIDED
     Dates: start: 20210715, end: 20210803
  79. POTASSIUM BICARBONATE\POTASSIUM CITRATE [Concomitant]
     Active Substance: POTASSIUM BICARBONATE\POTASSIUM CITRATE
     Dosage: FREQUENCY TEXT: NOT PROVIDED
     Dates: start: 20210722
  80. TRAMADOL [Concomitant]
     Active Substance: TRAMADOL
     Indication: Pain in extremity
     Dosage: FREQUENCY TEXT: NOT PROVIDED
     Dates: start: 20211103, end: 20211103
  81. LEVOFLOXACIN [Concomitant]
     Active Substance: LEVOFLOXACIN
     Indication: Infection prophylaxis
     Dosage: FREQUENCY TEXT: NOT PROVIDED
     Dates: start: 20210722, end: 20211030
  82. LEVOFLOXACIN [Concomitant]
     Active Substance: LEVOFLOXACIN
     Dosage: FREQUENCY TEXT: NOT PROVIDED
     Dates: start: 20211104, end: 20211114
  83. LEVOFLOXACIN [Concomitant]
     Active Substance: LEVOFLOXACIN
     Dosage: FREQUENCY TEXT: NOT PROVIDED
     Dates: start: 20211017, end: 20211030
  84. MELOXICAM [Concomitant]
     Active Substance: MELOXICAM
     Indication: Product used for unknown indication
     Dosage: UNK (FREQUENCY TEXT: NOT PROVIDED)
     Route: 048
     Dates: start: 20211031
  85. ENOXAPARIN SODIUM [Concomitant]
     Active Substance: ENOXAPARIN SODIUM
     Indication: Prophylaxis
     Dosage: FREQUENCY TEXT: NOT PROVIDED
     Dates: start: 20211102
  86. Thiocodin [Concomitant]
     Indication: Cough
     Dosage: UNK
  87. Thiocodin [Concomitant]
     Indication: Infection
     Dosage: FREQUENCY TEXT: NOT PROVIDED
     Dates: start: 20211122, end: 20211125
  88. CLATRA [Concomitant]
     Indication: Allergy prophylaxis
     Dosage: FREQUENCY TEXT: NOT PROVIDED
     Route: 048
     Dates: start: 20211031
  89. ACETAMINOPHEN [Concomitant]
     Active Substance: ACETAMINOPHEN
     Indication: Product used for unknown indication
     Dosage: FREQUENCY TEXT: NOT PROVIDED
     Dates: start: 20210714, end: 20210714
  90. FUROSEMIDE [Concomitant]
     Active Substance: FUROSEMIDE
     Indication: Product used for unknown indication
     Dosage: UNK (FREQUENCY TEXT: NOT PROVIDED)
     Dates: start: 20210713, end: 20210716
  91. NATRIUM BICARBONICUM [Concomitant]
     Indication: Prophylaxis
     Dosage: FREQUENCY TEXT: NOT PROVIDED
     Dates: start: 20211102, end: 20211110
  92. ACYCLOVIR [Concomitant]
     Active Substance: ACYCLOVIR
     Indication: Product used for unknown indication
     Dosage: UNK
     Dates: start: 20211017
  93. ACYCLOVIR [Concomitant]
     Active Substance: ACYCLOVIR
     Dosage: UNK
     Dates: start: 20211116
  94. ACYCLOVIR [Concomitant]
     Active Substance: ACYCLOVIR
     Dosage: UNK
     Dates: start: 20211122
  95. ACYCLOVIR [Concomitant]
     Active Substance: ACYCLOVIR
     Dosage: UNK
  96. ACYCLOVIR [Concomitant]
     Active Substance: ACYCLOVIR
     Dosage: UNK
     Dates: start: 20211116
  97. ACYCLOVIR [Concomitant]
     Active Substance: ACYCLOVIR
     Dosage: UNK
     Dates: start: 20211122
  98. ACYCLOVIR [Concomitant]
     Active Substance: ACYCLOVIR
     Dosage: UNK
     Dates: start: 20211029
  99. ACYCLOVIR [Concomitant]
     Active Substance: ACYCLOVIR
     Dosage: UNK
     Dates: start: 20211031
  100. LEVOFLOXACIN [Concomitant]
     Active Substance: LEVOFLOXACIN
     Indication: Product used for unknown indication
     Dosage: UNK
     Dates: start: 20211104, end: 20211114
  101. GABAPENTIN [Concomitant]
     Active Substance: GABAPENTIN
     Indication: Vertigo
     Dosage: FREQUENCY TEXT: NOT PROVIDED
     Dates: start: 20211031, end: 20211110
  102. LOPERAMIDE [Concomitant]
     Active Substance: LOPERAMIDE
     Indication: Product used for unknown indication
     Dosage: UNK
     Dates: start: 20210717, end: 20210717
  103. BETADINE [Concomitant]
     Active Substance: POVIDONE-IODINE
     Indication: Product used for unknown indication
     Dosage: UNK
     Dates: start: 20210425, end: 20210914
  104. NYSTATIN [Concomitant]
     Active Substance: NYSTATIN
     Indication: Product used for unknown indication
     Dosage: UNK
     Dates: start: 20210417, end: 20210825
  105. LEVOFLOXACIN [Concomitant]
     Active Substance: LEVOFLOXACIN
     Indication: Infection prophylaxis
     Dosage: UNK
     Dates: start: 20211017, end: 20211028

REACTIONS (3)
  - Respiratory syncytial virus infection [Fatal]
  - Febrile neutropenia [Recovered/Resolved]
  - Soft tissue inflammation [Recovered/Resolved]

NARRATIVE: CASE EVENT DATE: 20210803
